FAERS Safety Report 5045462-4 (Version None)
Quarter: 2006Q3

REPORT INFORMATION
  Report Type: 
  Country: None (occurrence: None)
  Receive Date: 20060707
  Receipt Date: 20060628
  Transmission Date: 20061208
  Serious: Yes (Other)
  Sender: FDA-Public Use
  Company Number: US-JNJFOC-20060606192

PATIENT
  Sex: Male
  Weight: 94.35 kg

DRUGS (3)
  1. REMICADE [Suspect]
     Dosage: ^500 MG 2 DOSES^
     Route: 042
  2. REMICADE [Suspect]
     Indication: PSORIASIS
     Route: 042
  3. PREDNISONE TAB [Concomitant]
     Indication: PSORIASIS
     Route: 042

REACTIONS (5)
  - BACK PAIN [None]
  - CHILLS [None]
  - INFUSION RELATED REACTION [None]
  - OXYGEN SATURATION DECREASED [None]
  - TREMOR [None]
